FAERS Safety Report 6979732-7 (Version None)
Quarter: 2010Q3

REPORT INFORMATION
  Report Type: 
  Country: None (occurrence: None)
  Receive Date: 20100913
  Receipt Date: 20100906
  Transmission Date: 20110219
  Serious: Yes (Hospitalization)
  Sender: FDA-Public Use
  Company Number: PHHO2009GB07409

PATIENT
  Sex: Female
  Weight: 55 kg

DRUGS (3)
  1. ERL 080A ERL+TAB [Suspect]
     Indication: LUNG TRANSPLANT
     Dosage: UNK
     Dates: start: 20071126, end: 20071207
  2. CERTICAN [Suspect]
     Indication: LUNG TRANSPLANT
     Dosage: 0.75 MG / DAY
     Route: 048
     Dates: start: 20080103, end: 20080105
  3. CERTICAN [Suspect]
     Dosage: OPEN-LABEL
     Route: 048

REACTIONS (13)
  - ANASTOMOTIC STENOSIS [None]
  - BRONCHOSCOPY [None]
  - CHEST PAIN [None]
  - LOWER RESPIRATORY TRACT INFECTION [None]
  - PNEUMONIA PNEUMOCOCCAL [None]
  - PNEUMOTHORAX [None]
  - PRODUCTIVE COUGH [None]
  - PYREXIA [None]
  - SPUTUM DISCOLOURED [None]
  - STENT PLACEMENT [None]
  - STENT REMOVAL [None]
  - SUBCUTANEOUS EMPHYSEMA [None]
  - THORACIC CAVITY DRAINAGE [None]
